FAERS Safety Report 8010553-2 (Version None)
Quarter: 2011Q4

REPORT INFORMATION
  Report Type: 
  Country: None (occurrence: None)
  Receive Date: 20111228
  Receipt Date: 20111215
  Transmission Date: 20120403
  Serious: Yes (Other)
  Sender: FDA-Public Use
  Company Number: PHHY2011BR109662

PATIENT
  Sex: Male

DRUGS (2)
  1. APRESOLINE [Suspect]
     Indication: HYPERTENSION
     Dosage: 3 DF, QD
  2. EXFORGE [Suspect]
     Indication: HYPERTENSION
     Dosage: 1 DF, QD

REACTIONS (3)
  - EMOTIONAL DISORDER [None]
  - INFARCTION [None]
  - HYPERTENSION [None]
